FAERS Safety Report 8283207 (Version 8)
Quarter: 2012Q4

REPORT INFORMATION
  Report Type: 
  Country: US (occurrence: US)
  Receive Date: 20111209
  Receipt Date: 20121004
  Transmission Date: 20130627
  Serious: Yes (Hospitalization, Other)
  Sender: FDA-Public Use
  Company Number: US-ASTRAZENECA-2011SE70378

PATIENT
  Age: 58 Year
  Sex: Female
  Weight: 100.7 kg

DRUGS (18)
  1. NEXIUM [Suspect]
     Indication: GASTROOESOPHAGEAL REFLUX DISEASE
     Route: 048
     Dates: start: 2010, end: 201012
  2. NEXIUM [Suspect]
     Indication: GASTROOESOPHAGEAL REFLUX DISEASE
     Route: 048
     Dates: start: 201012
  3. NEXIUM [Suspect]
     Indication: GASTROOESOPHAGEAL REFLUX DISEASE
     Route: 048
     Dates: start: 2011
  4. PRILOSEC [Suspect]
     Indication: GASTROOESOPHAGEAL REFLUX DISEASE
     Route: 048
     Dates: end: 2011
  5. PRILOSEC [Suspect]
     Indication: GASTROOESOPHAGEAL REFLUX DISEASE
     Route: 048
     Dates: start: 201012, end: 201012
  6. CRESTOR [Suspect]
     Route: 048
  7. LISINOPRIL [Concomitant]
     Indication: BLOOD PRESSURE ABNORMAL
     Route: 048
  8. ASPIRIN [Concomitant]
  9. SECTRAL [Concomitant]
  10. ALPRAZOLAM [Concomitant]
     Indication: ANXIETY
  11. PERCOCET [Concomitant]
     Indication: PAIN
     Dosage: 5-325 MG 5 TIMES A DAY AS NEEDED
  12. CLOTRIMAZOLE-BETAMETHASONE [Concomitant]
     Indication: RASH
     Dosage: 1-0.05 % APPLY TWICE DAILY
  13. ECOTRIN [Concomitant]
  14. HYOSCYAMINE SULFATE [Concomitant]
     Dosage: 0.125 MG ONE BEFORE MEALS AND AT BED TIME
  15. VENTOLIN HFA [Concomitant]
     Indication: DYSPNOEA
     Dosage: 108 (90 BASE) AERS 2 INHALATIONS FOUR TIMES A DAY AS NEEDED
  16. NITROSTAT [Concomitant]
     Indication: CHEST PAIN
     Dosage: 0.4 MG SUBL 1 SL AS NEEDED
  17. LYRICA [Concomitant]
  18. NEOMYCIN-POLYMYXIN-HC [Concomitant]
     Dosage: 3.5-10000-1 SOLN 5 DROPS IN RIGHT EAR FOUR TIMES A DAY

REACTIONS (27)
  - Myocardial infarction [Unknown]
  - Choking [Unknown]
  - Supraventricular tachycardia [Unknown]
  - Oropharyngeal pain [Unknown]
  - Arrhythmia [Unknown]
  - Chest pain [Unknown]
  - Gastritis [Unknown]
  - Gastrooesophageal reflux disease [Unknown]
  - Dysphagia [Unknown]
  - Abdominal pain upper [Unknown]
  - Adverse event [Unknown]
  - Oesophageal pain [Recovered/Resolved]
  - Memory impairment [Unknown]
  - Hypersensitivity [Unknown]
  - Therapeutic response unexpected [Unknown]
  - Asthenia [Unknown]
  - Fall [Unknown]
  - Hypoaesthesia [Unknown]
  - Burning sensation [Unknown]
  - Insomnia [Unknown]
  - Paraesthesia [Unknown]
  - Hypertension [Unknown]
  - Dyspepsia [Recovered/Resolved]
  - Malaise [Unknown]
  - Aphagia [Unknown]
  - Drug dose omission [Unknown]
  - Drug ineffective [Unknown]
